FAERS Safety Report 6654229-2 (Version None)
Quarter: 2010Q1

REPORT INFORMATION
  Report Type: 
  Country: None (occurrence: None)
  Receive Date: 20100324
  Receipt Date: 20100310
  Transmission Date: 20100710
  Serious: Yes (Hospitalization)
  Sender: FDA-Public Use
  Company Number: JP-1180840

PATIENT
  Age: 78 Year
  Sex: Male

DRUGS (3)
  1. TRAVATAN Z [Suspect]
     Indication: OPEN ANGLE GLAUCOMA
     Dosage: 1 GTT QD OU, OPHTHALMIC
     Route: 047
     Dates: start: 20090216, end: 20100124
  2. AZOPT [Concomitant]
  3. COBALUM     (CYANOCOBALAMIN) [Concomitant]

REACTIONS (1)
  - RETINAL HAEMORRHAGE [None]
